FAERS Safety Report 15843161 (Version 2)
Quarter: 2019Q1

REPORT INFORMATION
  Report Type: Report from Study
  Country: US (occurrence: US)
  Receive Date: 20190118
  Receipt Date: 20190227
  Transmission Date: 20190417
  Serious: Yes (Death)
  Sender: FDA-Public Use
  Company Number: US-BAUSCH-BL-2019-001775

PATIENT
  Sex: Male

DRUGS (1)
  1. XIFAXAN [Suspect]
     Active Substance: RIFAXIMIN
     Indication: HEPATIC ENCEPHALOPATHY
     Route: 065
     Dates: start: 200801

REACTIONS (2)
  - Upper gastrointestinal haemorrhage [Fatal]
  - Shock haemorrhagic [Fatal]
